FAERS Safety Report 18539288 (Version 5)
Quarter: 2021Q2

REPORT INFORMATION
  Report Type: Report from Study
  Country: BR (occurrence: BR)
  Receive Date: 20201124
  Receipt Date: 20210424
  Transmission Date: 20210717
  Serious: Yes (Death, Other)
  Sender: FDA-Public Use
  Company Number: NVSC2020BR312285

PATIENT
  Age: 72 Year
  Sex: Male
  Weight: 62 kg

DRUGS (7)
  1. ENALAPRIL MALEATE. [Concomitant]
     Active Substance: ENALAPRIL MALEATE
     Indication: HYPERTENSION
     Dosage: UNK (15 YEARS AGO)
     Route: 065
  2. VOTRIENT [Suspect]
     Active Substance: PAZOPANIB HYDROCHLORIDE
     Indication: RENAL CELL CARCINOMA
     Dosage: 800 MG, QD (2 TABLETS ONCE A DAY) (AFTER BREAKFAST)
     Route: 065
     Dates: start: 20200826
  3. VOTRIENT [Suspect]
     Active Substance: PAZOPANIB HYDROCHLORIDE
     Dosage: 800 MG, QD (2 TABLETS ONCE A DAY) (AFTER BREAKFAST)
     Route: 065
     Dates: start: 20200826
  4. HIDROCLOROTIAZIDA [Concomitant]
     Active Substance: HYDROCHLOROTHIAZIDE
     Indication: DIURETIC THERAPY
     Dosage: UNK
     Route: 065
  5. VOTRIENT [Suspect]
     Active Substance: PAZOPANIB HYDROCHLORIDE
     Dosage: 800 MG, QD (2 TABLETS ONCE A DAY) (AFTER BREAKFAST)
     Route: 065
     Dates: start: 20200826
  6. FOLIC ACID. [Concomitant]
     Active Substance: FOLIC ACID
     Indication: PRODUCT USED FOR UNKNOWN INDICATION
     Dosage: UNK
     Route: 065
  7. AMLODIPINE [Concomitant]
     Active Substance: AMLODIPINE BESYLATE
     Indication: PRODUCT USED FOR UNKNOWN INDICATION
     Dosage: UNK
     Route: 065

REACTIONS (41)
  - Cardiac arrest [Fatal]
  - Testicular swelling [Unknown]
  - Oxygen saturation decreased [Unknown]
  - Coccydynia [Unknown]
  - Gait disturbance [Unknown]
  - Fluid retention [Unknown]
  - Anaemia [Unknown]
  - Peripheral swelling [Unknown]
  - Retching [Unknown]
  - Thyroid disorder [Unknown]
  - Peripheral swelling [Recovering/Resolving]
  - Ageusia [Recovering/Resolving]
  - Feeling of despair [Not Recovered/Not Resolved]
  - Metastasis [Unknown]
  - Vomiting [Recovered/Resolved]
  - Fluid intake reduced [Unknown]
  - Fatigue [Not Recovered/Not Resolved]
  - Testicular pain [Unknown]
  - Abdominal pain [Unknown]
  - Wrong technique in product usage process [Not Recovered/Not Resolved]
  - Diarrhoea [Recovering/Resolving]
  - Testicular disorder [Unknown]
  - Blood pressure abnormal [Unknown]
  - Pigmentation disorder [Recovering/Resolving]
  - Dehydration [Unknown]
  - Product lot number issue [Unknown]
  - Abdominal distension [Recovering/Resolving]
  - Dysphonia [Unknown]
  - Decreased appetite [Recovered/Resolved]
  - Nausea [Recovered/Resolved]
  - Diarrhoea [Recovered/Resolved]
  - Weight decreased [Not Recovered/Not Resolved]
  - Insomnia [Unknown]
  - Vomiting [Recovering/Resolving]
  - Renal disorder [Unknown]
  - Liver disorder [Unknown]
  - Pain in extremity [Unknown]
  - Antibiotic associated colitis [Unknown]
  - Hair colour changes [Unknown]
  - Renal pain [Recovered/Resolved]
  - Asthenia [Not Recovered/Not Resolved]

NARRATIVE: CASE EVENT DATE: 2020
